FAERS Safety Report 9977938 (Version 2)
Quarter: 2014Q1

REPORT INFORMATION
  Report Type: Report from Study
  Country: PR (occurrence: PR)
  Receive Date: 20140306
  Receipt Date: 20140306
  Transmission Date: 20141002
  Serious: Yes (Other)
  Sender: FDA-Public Use
  Company Number: PR-ABBVIE-13P-131-1159916-00

PATIENT
  Sex: Female
  Weight: 77.18 kg

DRUGS (8)
  1. HUMIRA [Suspect]
     Indication: RHEUMATOID ARTHRITIS
     Route: 058
     Dates: end: 20131014
  2. SYNTHROID [Concomitant]
     Indication: THYROID DISORDER
     Route: 048
  3. NEURONTIN [Concomitant]
     Indication: PAIN
     Route: 048
  4. ALDACTONE [Concomitant]
     Indication: HYPERTENSION
     Route: 048
  5. SINGULAIR [Concomitant]
     Indication: ASTHMA
     Route: 048
     Dates: start: 2012
  6. ADVAIR [Concomitant]
     Indication: ASTHMA
     Dates: start: 2012
  7. SULINDAC [Concomitant]
     Indication: ANTIINFLAMMATORY THERAPY
     Route: 048
  8. UNKNOWN [Concomitant]
     Indication: HYPERTENSION
     Dosage: 25/6.25
     Route: 048

REACTIONS (4)
  - Cataract [Recovering/Resolving]
  - Cataract [Not Recovered/Not Resolved]
  - Asthma [Recovered/Resolved]
  - Nodule [Recovered/Resolved]
